FAERS Safety Report 5464584-7 (Version None)
Quarter: 2007Q3

REPORT INFORMATION
  Report Type: 
  Country: None (occurrence: None)
  Receive Date: 20070820
  Receipt Date: 20070525
  Transmission Date: 20080115
  Serious: No
  Sender: FDA-Public Use
  Company Number: WAES 0705USA05315

PATIENT
  Age: 55 Year
  Sex: Male

DRUGS (10)
  1. JANUVIA [Suspect]
     Dosage: 100 MG/PO
     Route: 048
  2. AVANDIA [Concomitant]
  3. CRESTOR [Concomitant]
  4. DYNACIRC CR [Concomitant]
  5. TRIGLIDE [Concomitant]
  6. ZETIA [Concomitant]
  7. ZOLOFT [Concomitant]
  8. ATENOLOL [Concomitant]
  9. LISINOPRIL [Concomitant]
  10. METFORMIN [Concomitant]

REACTIONS (1)
  - DIARRHOEA [None]
